FAERS Safety Report 21886069 (Version 2)
Quarter: 2023Q1

REPORT INFORMATION
  Report Type: Spontaneous
  Country: JP (occurrence: None)
  Receive Date: 20230119
  Receipt Date: 20230202
  Transmission Date: 20230417
  Serious: Yes (Hospitalization)
  Sender: FDA-Public Use
  Company Number: 2023A009357

PATIENT
  Age: 79 Year
  Sex: Male

DRUGS (2)
  1. DAPAGLIFLOZIN [Suspect]
     Active Substance: DAPAGLIFLOZIN
     Indication: Cardiac failure chronic
     Route: 048
  2. INSULIN NOS [Concomitant]
     Active Substance: INSULIN NOS
     Indication: Type 2 diabetes mellitus
     Dosage: DOSE UNKNOWN
     Route: 065

REACTIONS (4)
  - Dehydration [Recovered/Resolved]
  - Hyperlactacidaemia [Recovered/Resolved]
  - Hypoglycaemia [Recovered/Resolved]
  - Chronic kidney disease [Recovered/Resolved]
